FAERS Safety Report 11441061 (Version 1)
Quarter: 2015Q3

REPORT INFORMATION
  Report Type: Spontaneous
  Country: US (occurrence: US)
  Receive Date: 20150821
  Receipt Date: 20150821
  Transmission Date: 20151125
  Serious: No
  Sender: FDA-Public Use
  Company Number: US-ELI_LILLY_AND_COMPANY-US200802002372

PATIENT
  Sex: Female

DRUGS (6)
  1. THYROXINE [Concomitant]
     Active Substance: LEVOTHYROXINE
  2. HYDROCORTISONE. [Concomitant]
     Active Substance: HYDROCORTISONE
  3. HYDROCODONE BITARTRATE AND ACETAMINOPHEN [Concomitant]
     Active Substance: ACETAMINOPHEN\HYDROCODONE BITARTRATE
     Indication: PAIN
  4. ESTROGENS [Concomitant]
     Active Substance: ESTROGENS
     Route: 061
  5. TESTOSTERONE. [Concomitant]
     Active Substance: TESTOSTERONE
  6. CYMBALTA [Suspect]
     Active Substance: DULOXETINE HYDROCHLORIDE
     Indication: TREMOR
     Dosage: 30 MG, UNK
     Dates: start: 200711

REACTIONS (4)
  - Blood pressure increased [Not Recovered/Not Resolved]
  - Vision blurred [Not Recovered/Not Resolved]
  - Flushing [Not Recovered/Not Resolved]
  - Ear haemorrhage [Not Recovered/Not Resolved]
